FAERS Safety Report 9731583 (Version 1)
Quarter: 2013Q4

REPORT INFORMATION
  Report Type: Report from Study
  Country: DE (occurrence: DE)
  Receive Date: 20131205
  Receipt Date: 20131205
  Transmission Date: 20140711
  Serious: Yes (Hospitalization)
  Sender: FDA-Public Use
  Company Number: DE-ROCHE-1312432

PATIENT
  Sex: Male
  Weight: 116 kg

DRUGS (2)
  1. BEVACIZUMAB [Suspect]
     Indication: BRONCHIAL CARCINOMA
     Route: 065
  2. CISPLATIN [Suspect]
     Indication: BRONCHIAL CARCINOMA
     Route: 042
     Dates: start: 20130704, end: 20130905

REACTIONS (1)
  - Renal failure acute [Recovering/Resolving]
